FAERS Safety Report 8964323 (Version 1)
Quarter: 2012Q4

REPORT INFORMATION
  Report Type: Report from Study
  Country: FR (occurrence: FR)
  Receive Date: 20121214
  Receipt Date: 20121214
  Transmission Date: 20130627
  Serious: Yes (Hospitalization, Other)
  Sender: FDA-Public Use
  Company Number: FR-CELGENEUS-056-50794-12120229

PATIENT
  Age: 59 Year
  Sex: Male
  Weight: 75 kg

DRUGS (4)
  1. VIDAZA [Suspect]
     Indication: MDS
     Route: 058
     Dates: start: 20110912
  2. VIDAZA [Suspect]
     Indication: RAEB
     Route: 058
     Dates: start: 20120917, end: 20120923
  3. IXPRIM [Concomitant]
     Indication: ANALGESIA
     Route: 048
     Dates: start: 2007
  4. NEXIUM [Concomitant]
     Indication: GASTRITIS
     Route: 048
     Dates: start: 20110823

REACTIONS (2)
  - Intestinal obstruction [Recovered/Resolved]
  - Febrile neutropenia [Recovered/Resolved]
